FAERS Safety Report 15558257 (Version 1)
Quarter: 2018Q4

REPORT INFORMATION
  Report Type: Spontaneous
  Country: US (occurrence: US)
  Receive Date: 20181028
  Receipt Date: 20181028
  Transmission Date: 20190205
  Serious: No
  Sender: FDA-Public Use
  Company Number: US-JNJFOC-20181019706

PATIENT
  Sex: Female
  Weight: 122.02 kg

DRUGS (2)
  1. INVEGA SUSTENNA [Suspect]
     Active Substance: PALIPERIDONE PALMITATE
     Indication: MAJOR DEPRESSION
     Dosage: KIT
     Route: 030
     Dates: start: 20170119, end: 20180604
  2. INVEGA SUSTENNA [Suspect]
     Active Substance: PALIPERIDONE PALMITATE
     Indication: MAJOR DEPRESSION
     Dosage: KIT
     Route: 030
     Dates: start: 20180604

REACTIONS (2)
  - Blood prolactin increased [Unknown]
  - Rash [Not Recovered/Not Resolved]
